FAERS Safety Report 6274925-9 (Version None)
Quarter: 2009Q3

REPORT INFORMATION
  Report Type: 
  Country: None (occurrence: None)
  Receive Date: 20090721
  Receipt Date: 20090714
  Transmission Date: 20100115
  Serious: Yes (Other)
  Sender: FDA-Public Use
  Company Number: JP-JNJFOC-20090705892

PATIENT
  Age: 63 Year
  Sex: Male

DRUGS (3)
  1. TOPINA [Suspect]
     Indication: BRAIN CONTUSION
     Route: 048
  2. DEPAKENE [Interacting]
     Route: 048
  3. DEPAKENE [Interacting]
     Indication: BRAIN CONTUSION
     Route: 048

REACTIONS (2)
  - ANTICONVULSANT DRUG LEVEL DECREASED [None]
  - DRUG INTERACTION [None]
